FAERS Safety Report 4709254-5 (Version None)
Quarter: 2005Q3

REPORT INFORMATION
  Report Type: 
  Country: None (occurrence: None)
  Receive Date: 20050705
  Receipt Date: 20050628
  Transmission Date: 20060218
  Serious: Yes (Other)
  Sender: FDA-Public Use
  Company Number: 2005-06-0753

PATIENT
  Age: 51 Year
  Sex: Female
  Weight: 116.1208 kg

DRUGS (3)
  1. NASONEX [Suspect]
     Indication: MULTIPLE ALLERGIES
     Dosage: 2 SPR/NAR NASAL SPRAY
     Route: 045
     Dates: start: 20021224, end: 20020501
  2. ADVAIR (SALMETEROL/FLUTICASONE) INHALATION SOLUTION [Concomitant]
  3. PROTONIX (PANTOPRAZOLE SODIUM) TABLETS [Concomitant]

REACTIONS (2)
  - AGEUSIA [None]
  - ANOSMIA [None]
